FAERS Safety Report 6840074-1 (Version None)
Quarter: 2010Q3

REPORT INFORMATION
  Report Type: 
  Country: None (occurrence: None)
  Receive Date: 20100709
  Receipt Date: 20100629
  Transmission Date: 20110219
  Serious: Yes (Hospitalization)
  Sender: FDA-Public Use
  Company Number: RB-17423-2009

PATIENT
  Age: 47 Year
  Sex: Male

DRUGS (5)
  1. SUBUTEX [Suspect]
     Indication: DRUG DEPENDENCE
     Dosage: 8 MG QD SUBLINGUAL, DOSING INFORMATION UNKNOWN
     Route: 060
     Dates: start: 20090203, end: 20090224
  2. SUBUTEX [Suspect]
     Indication: DRUG DEPENDENCE
     Dosage: 8 MG QD SUBLINGUAL, DOSING INFORMATION UNKNOWN
     Route: 060
     Dates: start: 20090225
  3. AOTAL [Concomitant]
  4. DIAZEPAM [Concomitant]
  5. OXAZEPAM [Concomitant]

REACTIONS (1)
  - EPILEPSY [None]
